FAERS Safety Report 6609974-1 (Version None)
Quarter: 2010Q1

REPORT INFORMATION
  Report Type: 
  Country: None (occurrence: None)
  Receive Date: 20100302
  Receipt Date: 20100217
  Transmission Date: 20100710
  Serious: Yes (Hospitalization, Other)
  Sender: FDA-Public Use
  Company Number: PHHY2010DE09759

PATIENT
  Age: 66 Year
  Sex: Male

DRUGS (9)
  1. EXFORGE [Suspect]
     Indication: HYPERTENSION
     Dosage: 1 DF (160/5), UNK
     Route: 048
     Dates: start: 20091101, end: 20100121
  2. XIPAMIDE [Suspect]
     Indication: RENAL IMPAIRMENT
     Dosage: 20 MG, UNK
     Dates: start: 20091101, end: 20100121
  3. IMBUN [Suspect]
     Indication: PAIN
     Dosage: 1000 MG, UNK
     Dates: start: 20100107
  4. BISOPROLOL [Concomitant]
     Indication: HYPERTENSION
     Dosage: UNK
     Route: 048
     Dates: start: 20091101
  5. ALLOPURINOL [Concomitant]
     Indication: HYPERURICAEMIA
     Dosage: 300 MG, UNK
     Route: 048
     Dates: start: 20091101, end: 20100121
  6. SIMVASTATIN [Concomitant]
     Indication: METABOLIC SYNDROME
     Dosage: 30 MG, UNK
     Route: 048
     Dates: start: 20091101
  7. TOREM [Concomitant]
     Indication: HYPERTENSION
     Dosage: 10 MG, UNK
     Route: 048
     Dates: start: 20091101, end: 20100121
  8. DEKRISTOL [Concomitant]
     Indication: OSTEOPOROSIS PROPHYLAXIS
     Dosage: 20000 IU, UNK
  9. SEVREDOL [Concomitant]
     Indication: PAIN
     Dosage: 10 MG, UNK
     Route: 048
     Dates: start: 20100101

REACTIONS (5)
  - ASPARTATE AMINOTRANSFERASE INCREASED [None]
  - BLOOD PRESSURE DECREASED [None]
  - HAEMOGLOBIN DECREASED [None]
  - RENAL FAILURE ACUTE [None]
  - URINARY RETENTION [None]
